FAERS Safety Report 23030844 (Version 2)
Quarter: 2023Q4

REPORT INFORMATION
  Report Type: Report from Study
  Country: CN (occurrence: CN)
  Receive Date: 20231005
  Receipt Date: 20231017
  Transmission Date: 20240109
  Serious: Yes (Hospitalization)
  Sender: FDA-Public Use
  Company Number: CN-SA-0002961279

PATIENT
  Age: 56 Year
  Sex: Male
  Weight: 78 kg

DRUGS (7)
  1. ISATUXIMAB [Suspect]
     Active Substance: ISATUXIMAB
     Indication: Plasma cell myeloma refractory
     Dosage: 1400MG, UPPER LEFT ABDOMEN
     Route: 058
     Dates: start: 20230203, end: 20230203
  2. ISATUXIMAB [Suspect]
     Active Substance: ISATUXIMAB
     Dosage: 1400MG, UPPER LEFT ABDOMEN
     Route: 058
     Dates: start: 20230920, end: 20230920
  3. POMALIDOMIDE [Suspect]
     Active Substance: POMALIDOMIDE
     Indication: Plasma cell myeloma refractory
     Dosage: 4 MG
     Route: 048
     Dates: start: 20230203, end: 20230223
  4. DEXAMETHASONE [Suspect]
     Active Substance: DEXAMETHASONE
     Indication: Plasma cell myeloma refractory
     Dosage: 40 MG, QW
     Route: 048
     Dates: start: 20230203, end: 20230203
  5. DEXAMETHASONE [Suspect]
     Active Substance: DEXAMETHASONE
     Dosage: 40 MG,QW
     Route: 048
     Dates: start: 20230920, end: 20230920
  6. LEVAMLODIPINE MALEATE [Concomitant]
     Active Substance: LEVAMLODIPINE MALEATE
     Dosage: UNK
     Route: 048
     Dates: start: 20230204
  7. ASPIRIN [Concomitant]
     Active Substance: ASPIRIN
     Indication: Prophylaxis
     Dosage: UNK
     Route: 048
     Dates: start: 20230325

REACTIONS (1)
  - Disease progression [Not Recovered/Not Resolved]

NARRATIVE: CASE EVENT DATE: 20230927
